FAERS Safety Report 4505434-2 (Version None)
Quarter: 2004Q4

REPORT INFORMATION
  Report Type: 
  Country: None (occurrence: None)
  Receive Date: 20041118
  Receipt Date: 20041118
  Transmission Date: 20050328
  Serious: No
  Sender: FDA-Public Use
  Company Number: None

PATIENT
  Age: 50 Year
  Sex: Female
  Weight: 90.7194 kg

DRUGS (2)
  1. VANCOMYCIN [Suspect]
     Indication: INFECTION
     Dosage: 1 GM Q12H  IV INTRAVENOUS
     Route: 042
     Dates: start: 20041010, end: 20041113
  2. VANCOMYCIN [Suspect]
     Indication: SPINAL LAMINECTOMY
     Dosage: 1 GM Q12H  IV INTRAVENOUS
     Route: 042
     Dates: start: 20041010, end: 20041113

REACTIONS (3)
  - RASH ERYTHEMATOUS [None]
  - RASH GENERALISED [None]
  - SWELLING FACE [None]
